FAERS Safety Report 10543260 (Version 1)
Quarter: 2014Q4

REPORT INFORMATION
  Report Type: Spontaneous
  Country: US (occurrence: None)
  Receive Date: 20141023
  Receipt Date: 20141023
  Transmission Date: 20150529
  Serious: Yes (Hospitalization, Disabling)
  Sender: FDA-Public Use
  Company Number: 2014ST000116

PATIENT
  Age: 67 Year
  Sex: Male
  Weight: 93.9 kg

DRUGS (4)
  1. UCERIS [Suspect]
     Active Substance: BUDESONIDE
     Indication: COLITIS ULCERATIVE
     Dosage: EVERYDAY
     Route: 048
     Dates: start: 20130418, end: 20130813
  2. UCERIS [Suspect]
     Active Substance: BUDESONIDE
     Indication: COLITIS
     Dosage: EVERYDAY
     Route: 048
     Dates: start: 20130418, end: 20130813
  3. UCERIS [Suspect]
     Active Substance: BUDESONIDE
     Indication: GRANULOMA
     Dosage: EVERYDAY
     Route: 048
     Dates: start: 20130418, end: 20130813
  4. UCERIS [Suspect]
     Active Substance: BUDESONIDE
     Indication: CYTOMEGALOVIRUS COLITIS
     Dosage: EVERYDAY
     Route: 048
     Dates: start: 20130418, end: 20130813

REACTIONS (5)
  - Campylobacter infection [None]
  - Cytomegalovirus colitis [None]
  - Haemorrhage [None]
  - Pain [None]
  - Condition aggravated [None]
